FAERS Safety Report 9641671 (Version 1)
Quarter: 2013Q4

REPORT INFORMATION
  Report Type: Spontaneous
  Country: BR (occurrence: BR)
  Receive Date: 20131023
  Receipt Date: 20131023
  Transmission Date: 20140711
  Serious: Yes (Other)
  Sender: FDA-Public Use
  Company Number: BR-ELI_LILLY_AND_COMPANY-BR201310004852

PATIENT
  Sex: Male
  Weight: 103 kg

DRUGS (5)
  1. HUMULIN N [Suspect]
     Indication: TYPE 2 DIABETES MELLITUS
     Dosage: 30 IU, TID
     Route: 058
  2. HUMULIN R [Suspect]
     Indication: TYPE 2 DIABETES MELLITUS
     Dosage: 12 IU, EACH EVENING
     Route: 058
  3. HUMULIN R [Suspect]
     Dosage: 10 IU, BID
     Route: 058
  4. ZOCOR [Concomitant]
     Indication: BLOOD CHOLESTEROL
     Dosage: UNK, UNKNOWN
     Route: 065
  5. LOSARTAN [Concomitant]
     Indication: BLOOD PRESSURE
     Dosage: UNK, UNKNOWN
     Route: 065

REACTIONS (4)
  - Retinopathy [Not Recovered/Not Resolved]
  - Cataract [Unknown]
  - Eye haemorrhage [Unknown]
  - Incorrect route of drug administration [Unknown]
